FAERS Safety Report 10136452 (Version 1)
Quarter: 2014Q2

REPORT INFORMATION
  Report Type: Spontaneous
  Country: US (occurrence: None)
  Receive Date: 20140425
  Receipt Date: 20140425
  Transmission Date: 20141212
  Serious: Yes (Other)
  Sender: FDA-Public Use
  Company Number: UTC-047410

PATIENT
  Age: 67 Year
  Sex: Female
  Weight: 207.2 kg

DRUGS (3)
  1. REMODULIN [Suspect]
     Indication: COR PULMONALE CHRONIC
     Dosage: 144 UG/KG (0.1 UG/KG, 1 IN 1 MIN),INTRAVENOUS DRIP
     Route: 041
     Dates: start: 20130216, end: 20140409
  2. REVATIO (SILDENAFIL CITRATE) (UNKNOWN) [Concomitant]
  3. SILDENAFIL (SILDENAFIL) (UNKNOWN) [Concomitant]

REACTIONS (3)
  - Oedema peripheral [None]
  - Dyspnoea [None]
  - Fatigue [None]
